FAERS Safety Report 13990465 (Version 2)
Quarter: 2017Q3

REPORT INFORMATION
  Report Type: Spontaneous
  Country: US (occurrence: US)
  Receive Date: 20170920
  Receipt Date: 20170922
  Transmission Date: 20171128
  Serious: Yes (Hospitalization)
  Sender: FDA-Public Use
  Company Number: US-LUNDBECK-DKLU2034744

PATIENT
  Age: 30 Year
  Sex: Female

DRUGS (1)
  1. NORTHERA [Suspect]
     Active Substance: DROXIDOPA
     Indication: PRODUCT USED FOR UNKNOWN INDICATION
     Dosage: SCHEDULE B/TITRATION COMPLETE
     Route: 065

REACTIONS (6)
  - Cardiac disorder [Unknown]
  - Dyspnoea [Unknown]
  - Palpitations [Unknown]
  - Respiratory disorder [Unknown]
  - Syncope [Unknown]
  - Presyncope [Unknown]

NARRATIVE: CASE EVENT DATE: 20170912
